FAERS Safety Report 8169460-7 (Version None)
Quarter: 2012Q1

REPORT INFORMATION
  Report Type: 
  Country: None (occurrence: None)
  Receive Date: 20120222
  Receipt Date: 20120213
  Transmission Date: 20120608
  Serious: Yes (Hospitalization, Other)
  Sender: FDA-Public Use
  Company Number: AUR-APL-2010-02677

PATIENT
  Age: 28 Year
  Sex: Female
  Weight: 90 kg

DRUGS (7)
  1. SCOPOLAMINE [Suspect]
     Indication: PROPHYLAXIS OF NAUSEA AND VOMITING
     Dosage: 1.5 MG (1.5 MG), TRANSDERMAL
     Route: 062
  2. FENTANYL [Concomitant]
  3. ONDANSETRON [Concomitant]
  4. CITALOPRAM HYDROBROMIDE [Suspect]
     Indication: DEPRESSION
  5. PROPOFOL [Concomitant]
  6. MIDAZOLAM HCL [Concomitant]
  7. DEXAMETHASONE [Concomitant]

REACTIONS (8)
  - HYPERCAPNIA [None]
  - TACHYCARDIA [None]
  - DRUG INTERACTION [None]
  - HYPOXIA [None]
  - MYDRIASIS [None]
  - PAIN [None]
  - ANTICHOLINERGIC SYNDROME [None]
  - UNRESPONSIVE TO STIMULI [None]
